FAERS Safety Report 18454162 (Version 1)
Quarter: 2020Q4

REPORT INFORMATION
  Report Type: Spontaneous
  Country: AU (occurrence: AU)
  Receive Date: 20201102
  Receipt Date: 20201102
  Transmission Date: 20210114
  Serious: Yes (Other)
  Sender: FDA-Public Use
  Company Number: AU-JNJFOC-20201038749

PATIENT
  Sex: Male
  Weight: 85 kg

DRUGS (6)
  1. INVEGA [Suspect]
     Active Substance: PALIPERIDONE
     Route: 048
     Dates: start: 201405, end: 20140719
  2. INVEGA [Suspect]
     Active Substance: PALIPERIDONE
     Route: 048
     Dates: start: 201404
  3. INVEGA [Suspect]
     Active Substance: PALIPERIDONE
     Route: 048
     Dates: start: 201404
  4. INVEGA [Suspect]
     Active Substance: PALIPERIDONE
     Indication: SCHIZOPHRENIA
     Route: 048
     Dates: start: 201403
  5. LORAZEPAM. [Concomitant]
     Active Substance: LORAZEPAM
  6. ARIPIPRAZOLE. [Concomitant]
     Active Substance: ARIPIPRAZOLE

REACTIONS (7)
  - Anorgasmia [Unknown]
  - Parkinsonism [Unknown]
  - Pulmonary embolism [Unknown]
  - Blood prolactin increased [Unknown]
  - Hypotension [Unknown]
  - Insomnia [Unknown]
  - Chest pain [Unknown]

NARRATIVE: CASE EVENT DATE: 2014
